FAERS Safety Report 4823899-3 (Version None)
Quarter: 2005Q4

REPORT INFORMATION
  Report Type: 
  Country: None (occurrence: None)
  Receive Date: 20051107
  Receipt Date: 20051029
  Transmission Date: 20060501
  Serious: Yes (Other)
  Sender: FDA-Public Use
  Company Number: 2005113743

PATIENT
  Age: 68 Year
  Sex: Male
  Weight: 98.4306 kg

DRUGS (12)
  1. LIPITOR [Suspect]
     Indication: BLOOD CHOLESTEROL INCREASED
     Dosage: 10 MG (10 MG, 1 IN 1 D)
  2. ZYRTEC [Suspect]
     Indication: ILL-DEFINED DISORDER
  3. ALBUTEROL [Suspect]
     Indication: ILL-DEFINED DISORDER
     Dosage: PARENTERAL
     Route: 051
  4. VITAMIN B12 [Suspect]
     Indication: ILL-DEFINED DISORDER
  5. TAMSULOSIN HCL [Suspect]
     Indication: ILL-DEFINED DISORDER
  6. ISMO [Suspect]
     Indication: ILL-DEFINED DISORDER
  7. CARDIAC THERAPY [Concomitant]
  8. LORAZEPAM [Concomitant]
  9. METOPROLOL TARTRATE [Concomitant]
  10. NIASPAN [Concomitant]
  11. NIASPAN [Concomitant]
  12. PLAVIX [Concomitant]

REACTIONS (13)
  - BLINDNESS UNILATERAL [None]
  - BLOOD CHOLESTEROL DECREASED [None]
  - BLOOD GLUCOSE INCREASED [None]
  - BLOOD UREA NITROGEN/CREATININE RATIO DECREASED [None]
  - CATARACT [None]
  - EYE IRRITATION [None]
  - EYE PAIN [None]
  - HYPOACUSIS [None]
  - IMPAIRED HEALING [None]
  - INTERNATIONAL NORMALISED RATIO DECREASED [None]
  - JAW FRACTURE [None]
  - LACRIMATION INCREASED [None]
  - UNEVALUABLE EVENT [None]
